FAERS Safety Report 17331699 (Version 2)
Quarter: 2020Q1

REPORT INFORMATION
  Report Type: Spontaneous
  Country: US (occurrence: US)
  Receive Date: 20200127
  Receipt Date: 20200204
  Transmission Date: 20200409
  Serious: Yes (Other)
  Sender: FDA-Public Use
  Company Number: US-BIOMARINAP-US-2020-127789

PATIENT
  Age: 31 Year
  Sex: Male
  Weight: 130.57 kg

DRUGS (1)
  1. PALYNZIQ [Suspect]
     Active Substance: PEGVALIASE-PQPZ
     Indication: PHENYLKETONURIA
     Dosage: 20 MILLIGRAM, QD
     Route: 058

REACTIONS (2)
  - Hypersensitivity [Unknown]
  - Respiratory distress [Unknown]

NARRATIVE: CASE EVENT DATE: 201911
